FAERS Safety Report 20875463 (Version 2)
Quarter: 2022Q3

REPORT INFORMATION
  Report Type: Spontaneous
  Country: US (occurrence: US)
  Receive Date: 20220526
  Receipt Date: 20220705
  Transmission Date: 20221026
  Serious: No
  Sender: FDA-Public Use
  Company Number: US-ORGANON-O2205USA002027

PATIENT
  Age: 16 Year
  Sex: Female
  Weight: 66.213 kg

DRUGS (1)
  1. NEXPLANON [Suspect]
     Active Substance: ETONOGESTREL
     Dosage: 1 ROD OF 68 MG, ONCE, RIGHT ARM
     Route: 059
     Dates: start: 20210802

REACTIONS (2)
  - Device breakage [Not Recovered/Not Resolved]
  - No adverse event [Unknown]

NARRATIVE: CASE EVENT DATE: 20220523
